FAERS Safety Report 7177815-2 (Version None)
Quarter: 2010Q4

REPORT INFORMATION
  Report Type: 
  Country: None (occurrence: None)
  Receive Date: 20101220
  Receipt Date: 20101208
  Transmission Date: 20110411
  Serious: Yes (Hospitalization)
  Sender: FDA-Public Use
  Company Number: US-ELI_LILLY_AND_COMPANY-US201012002186

PATIENT
  Age: 63 Year
  Sex: Female
  Weight: 45 kg

DRUGS (18)
  1. GEMCITABINE HCL [Suspect]
     Indication: BREAST CANCER METASTATIC
     Dosage: 800 MG/M2, DAYS 1 AND 8
     Route: 065
     Dates: start: 20100114
  2. PACLITAXEL [Suspect]
     Indication: BREAST CANCER METASTATIC
     Dosage: 100 MG/M2, DAYS 1 AND 8
     Route: 065
     Dates: start: 20100114
  3. BEVACIZUMAB [Suspect]
     Indication: BREAST CANCER METASTATIC
     Dosage: 15 MG/KG, DAY 1
     Route: 042
     Dates: start: 20100114
  4. VASOTEC [Concomitant]
     Indication: HYPERTENSION
  5. MEGACE [Concomitant]
     Indication: DECREASED APPETITE
  6. ZOFRAN [Concomitant]
  7. ZANTAC [Concomitant]
  8. COMPAZINE [Concomitant]
  9. NEUPOGEN [Concomitant]
  10. LOMOTIL [Concomitant]
  11. CALCIUM [Concomitant]
  12. FISH OIL [Concomitant]
  13. FLAXSEED OIL [Concomitant]
  14. FOLIC ACID [Concomitant]
  15. L-CARNITINE [Concomitant]
  16. MULTI-VITAMIN [Concomitant]
  17. VITAMIN E [Concomitant]
  18. METOPROLOL TARTRATE [Concomitant]

REACTIONS (1)
  - PNEUMONIA [None]
